FAERS Safety Report 5906601-3 (Version None)
Quarter: 2008Q4

REPORT INFORMATION
  Report Type: 
  Country: None (occurrence: None)
  Receive Date: 20081002
  Receipt Date: 20080924
  Transmission Date: 20090506
  Serious: Yes (Life-Threatening)
  Sender: FDA-Public Use
  Company Number: CH-ELI_LILLY_AND_COMPANY-CH200809004009

PATIENT
  Age: 63 Year
  Sex: Female
  Weight: 93 kg

DRUGS (5)
  1. BYETTA [Suspect]
     Indication: TYPE 2 DIABETES MELLITUS
     Dosage: 10 UG, 2/D
     Route: 058
     Dates: start: 20060801
  2. LEVEMIR [Concomitant]
     Indication: DIABETES MELLITUS
     Dosage: 26 U, DAILY (1/D)
     Route: 058
     Dates: start: 20080501
  3. ELTROXIN [Concomitant]
     Indication: AUTOIMMUNE THYROIDITIS
     Dosage: 0.1 MG, DAILY (1/D)
     Route: 048
     Dates: start: 20060101, end: 20080501
  4. ELTROXIN [Concomitant]
     Dosage: 0.2 MG, DAILY (1/D)
     Route: 048
     Dates: start: 20080501, end: 20080101
  5. ELTROXIN [Concomitant]
     Dosage: 0.1 MG, DAILY (1/D)
     Route: 048
     Dates: start: 20080101

REACTIONS (4)
  - BLOOD GLUCOSE ABNORMAL [None]
  - BLOOD GLUCOSE INCREASED [None]
  - DEPRESSION [None]
  - MALAISE [None]
